FAERS Safety Report 5489000-0 (Version None)
Quarter: 2007Q4

REPORT INFORMATION
  Report Type: 
  Country: None (occurrence: None)
  Receive Date: 20071016
  Receipt Date: 20071008
  Transmission Date: 20080405
  Serious: Yes (Hospitalization)
  Sender: FDA-Public Use
  Company Number: LTI2007A00287

PATIENT
  Age: 65 Year
  Sex: Female

DRUGS (1)
  1. COMPETACT(PIOGLITAZONE HYDROCHLORIDE,METFORMIN HYDROCHLORIDE) [Suspect]
     Indication: TYPE 2 DIABETES MELLITUS
     Dosage: ORAL
     Route: 048
     Dates: end: 20071001

REACTIONS (2)
  - CHOLELITHIASIS [None]
  - PANCREATITIS [None]
